FAERS Safety Report 14666454 (Version 1)
Quarter: 2018Q1

REPORT INFORMATION
  Report Type: Spontaneous
  Country: US (occurrence: US)
  Receive Date: 20180320
  Receipt Date: 20180320
  Transmission Date: 20180509
  Serious: Yes (Hospitalization)
  Sender: FDA-Public Use
  Company Number: None

PATIENT
  Age: 68 Year
  Sex: Female

DRUGS (2)
  1. IBRANCE [Suspect]
     Active Substance: PALBOCICLIB
     Indication: CARCINOID TUMOUR
     Route: 048
     Dates: start: 20171021
  2. LETROZOLE 2.5MG [Suspect]
     Active Substance: LETROZOLE
     Indication: CARCINOID TUMOUR
     Route: 048
     Dates: start: 20171021

REACTIONS (2)
  - White blood cell count decreased [None]
  - Chronic obstructive pulmonary disease [None]
